FAERS Safety Report 24007879 (Version 1)
Quarter: 2024Q2

REPORT INFORMATION
  Report Type: Spontaneous
  Country: US (occurrence: US)
  Receive Date: 20240625
  Receipt Date: 20240625
  Transmission Date: 20240716
  Serious: Yes (Other)
  Sender: FDA-Public Use
  Company Number: US-PADAGIS-2024PAD01049

PATIENT

DRUGS (11)
  1. BETAMETHASONE DIPROPIONATE [Suspect]
     Active Substance: BETAMETHASONE DIPROPIONATE
     Indication: Chronic cutaneous lupus erythematosus
     Dosage: UNK
     Route: 065
  2. BETAMETHASONE DIPROPIONATE [Suspect]
     Active Substance: BETAMETHASONE DIPROPIONATE
     Indication: Palmoplantar pustulosis
     Dosage: UNK
     Route: 065
  3. FLUOCINOLONE ACETONIDE [Suspect]
     Active Substance: FLUOCINOLONE ACETONIDE
     Indication: Chronic cutaneous lupus erythematosus
     Dosage: AS NEEDED
     Route: 065
  4. CLINDAMYCIN PHOSPHATE [Suspect]
     Active Substance: CLINDAMYCIN PHOSPHATE
     Indication: Dermatitis acneiform
     Dosage: UNK
     Route: 061
  5. HYDROXYCHLOROQUINE [Suspect]
     Active Substance: HYDROXYCHLOROQUINE
     Indication: Chronic cutaneous lupus erythematosus
     Dosage: 200 MG, BID
     Route: 065
  6. KETOCONAZOLE [Suspect]
     Active Substance: KETOCONAZOLE
     Indication: Chronic cutaneous lupus erythematosus
     Dosage: UNK
     Route: 061
  7. TACROLIMUS [Suspect]
     Active Substance: TACROLIMUS
     Indication: Chronic cutaneous lupus erythematosus
     Dosage: UNK
     Route: 061
  8. TERBINAFINE [Suspect]
     Active Substance: TERBINAFINE
     Indication: Chronic cutaneous lupus erythematosus
     Dosage: UNK
     Route: 048
  9. TRIAMCINOLONE [Suspect]
     Active Substance: TRIAMCINOLONE
     Indication: Chronic cutaneous lupus erythematosus
     Dosage: UNK
     Route: 026
  10. METHOTREXATE [Concomitant]
     Active Substance: METHOTREXATE
     Indication: Chronic cutaneous lupus erythematosus
     Dosage: UNK
     Route: 065
  11. ACITRETIN [Concomitant]
     Active Substance: ACITRETIN
     Indication: Chronic cutaneous lupus erythematosus
     Dosage: UNK
     Route: 065

REACTIONS (4)
  - Treatment failure [Unknown]
  - Drug ineffective [Unknown]
  - Therapy partial responder [Unknown]
  - Product use in unapproved indication [Unknown]
